FAERS Safety Report 4725990-9 (Version None)
Quarter: 2005Q3

REPORT INFORMATION
  Report Type: 
  Country: None (occurrence: None)
  Receive Date: 20050727
  Receipt Date: 20050720
  Transmission Date: 20060218
  Serious: Yes (Other)
  Sender: FDA-Public Use
  Company Number: 200512134JP

PATIENT
  Sex: 0

DRUGS (3)
  1. ALLEGRA [Suspect]
  2. NORVASK [Concomitant]
  3. NU-LOTAN [Concomitant]

REACTIONS (1)
  - LOSS OF CONSCIOUSNESS [None]
